FAERS Safety Report 22335309 (Version 1)
Quarter: 2023Q2

REPORT INFORMATION
  Report Type: Spontaneous
  Country: TW (occurrence: TW)
  Receive Date: 20230518
  Receipt Date: 20230518
  Transmission Date: 20230721
  Serious: Yes (Other)
  Sender: FDA-Public Use
  Company Number: TW-MTPC-MTPC2023-0012382

PATIENT
  Age: 56 Year
  Sex: Male

DRUGS (1)
  1. REMICADE [Suspect]
     Active Substance: INFLIXIMAB
     Indication: Ankylosing spondylitis
     Dosage: 5 MILLIGRAM/KILOGRAM, Q8WEEKS
     Route: 042
     Dates: start: 20220531

REACTIONS (1)
  - Diabetic wound [Unknown]

NARRATIVE: CASE EVENT DATE: 20230503
